FAERS Safety Report 4908693-7 (Version None)
Quarter: 2006Q1

REPORT INFORMATION
  Report Type: 
  Country: None (occurrence: None)
  Receive Date: 20060210
  Receipt Date: 20051019
  Transmission Date: 20060701
  Serious: No
  Sender: FDA-Public Use
  Company Number: US-GLAXOSMITHKLINE-A0578796A

PATIENT
  Age: 59 Year
  Sex: Female

DRUGS (6)
  1. PAXIL CR [Suspect]
     Dosage: 12.5MG PER DAY
     Route: 048
     Dates: start: 20020101
  2. ARTHROTEC [Concomitant]
  3. ATENOLOL [Concomitant]
  4. TEGRETOL-XR [Concomitant]
  5. ZYRTEC [Concomitant]
  6. PREVACID [Concomitant]

REACTIONS (1)
  - HEADACHE [None]
